FAERS Safety Report 6149966-2 (Version None)
Quarter: 2009Q2

REPORT INFORMATION
  Report Type: 
  Country: None (occurrence: None)
  Receive Date: 20090409
  Receipt Date: 20090403
  Transmission Date: 20091009
  Serious: Yes (Other)
  Sender: FDA-Public Use
  Company Number: A0776867A

PATIENT
  Age: 44 Year
  Sex: Male

DRUGS (2)
  1. ADVAIR HFA [Suspect]
     Dosage: 1PUFF PER DAY
     Route: 055
     Dates: start: 20090301, end: 20090301
  2. NO CONCURRENT MEDICATION [Concomitant]

REACTIONS (3)
  - ASTHMA [None]
  - DYSPHONIA [None]
  - VOCAL CORD DISORDER [None]
